FAERS Safety Report 14615607 (Version 1)
Quarter: 2018Q1

REPORT INFORMATION
  Report Type: Report from Study
  Country: None (occurrence: US)
  Receive Date: 20180309
  Receipt Date: 20180309
  Transmission Date: 20180509
  Serious: Yes (Other)
  Sender: FDA-Public Use
  Company Number: US-ABBVIE-18K-163-2269318-00

PATIENT
  Age: 61 Year
  Sex: Male
  Weight: 143.46 kg

DRUGS (2)
  1. METHOTREXATE. [Concomitant]
     Active Substance: METHOTREXATE
     Indication: RHEUMATOID ARTHRITIS
  2. HUMIRA [Suspect]
     Active Substance: ADALIMUMAB
     Indication: RHEUMATOID ARTHRITIS
     Route: 058
     Dates: start: 20180212, end: 20180219

REACTIONS (4)
  - Mass [Not Recovered/Not Resolved]
  - Prostatic obstruction [Not Recovered/Not Resolved]
  - Muscle mass [Not Recovered/Not Resolved]
  - Sarcoma [Unknown]

NARRATIVE: CASE EVENT DATE: 20180219
